FAERS Safety Report 18050414 (Version 3)
Quarter: 2020Q3

REPORT INFORMATION
  Report Type: Spontaneous
  Country: US (occurrence: US)
  Receive Date: 20200721
  Receipt Date: 20200818
  Transmission Date: 20201103
  Serious: No
  Sender: FDA-Public Use
  Company Number: US-GLAXOSMITHKLINE-US2020AMR135829

PATIENT
  Sex: Female

DRUGS (4)
  1. ZEJULA [Suspect]
     Active Substance: NIRAPARIB
     Dosage: 200 MG, QD
     Route: 065
  2. ZEJULA [Suspect]
     Active Substance: NIRAPARIB
     Indication: OVARIAN CANCER
     Dosage: 300 MG, QD (IN THE AM WITH FOOD)
     Route: 065
     Dates: start: 20200706
  3. ZEJULA [Suspect]
     Active Substance: NIRAPARIB
     Dosage: 300 MG, QD
     Route: 065
  4. ZEJULA [Suspect]
     Active Substance: NIRAPARIB
     Dosage: 100 MG, QD
     Route: 048
     Dates: start: 20200807

REACTIONS (9)
  - Palpitations [Recovering/Resolving]
  - Head discomfort [Unknown]
  - Skin mass [Recovering/Resolving]
  - Nausea [Unknown]
  - Hypertension [Recovering/Resolving]
  - Arthralgia [Unknown]
  - Adverse drug reaction [Unknown]
  - Insomnia [Unknown]
  - Headache [Recovering/Resolving]
